FAERS Safety Report 22029738 (Version 4)
Quarter: 2023Q2

REPORT INFORMATION
  Report Type: Report from Study
  Country: JP (occurrence: JP)
  Receive Date: 20230223
  Receipt Date: 20230524
  Transmission Date: 20230722
  Serious: Yes (Life-Threatening, Hospitalization)
  Sender: FDA-Public Use
  Company Number: JP-PFIZER INC-PV202300033127

PATIENT
  Age: 10 Year
  Sex: Male
  Weight: 27.3 kg

DRUGS (10)
  1. SIROLIMUS [Suspect]
     Active Substance: SIROLIMUS
     Indication: Lymphangioma
     Dosage: 1 MG, 1X/DAY (1 MG,1 D)
     Route: 048
     Dates: start: 20211215, end: 20220713
  2. SIROLIMUS [Suspect]
     Active Substance: SIROLIMUS
     Dosage: 2 MG, 1X/DAY (2 MG,1 D)
     Route: 048
     Dates: start: 20220714
  3. FUROSEMIDE [Concomitant]
     Active Substance: FUROSEMIDE
     Indication: Pleural effusion
     Dosage: UNK
     Route: 048
     Dates: start: 20211006
  4. FUROSEMIDE [Concomitant]
     Active Substance: FUROSEMIDE
     Indication: Lymphangioma
  5. SPIRONOLACTONE [Concomitant]
     Active Substance: SPIRONOLACTONE
     Indication: Pleural effusion
     Dosage: UNK
     Route: 048
     Dates: start: 20211006
  6. ONEALFA [Concomitant]
     Active Substance: ALFACALCIDOL
     Indication: Bone lesion
     Dosage: UNK
     Route: 048
  7. ONEALFA [Concomitant]
     Active Substance: ALFACALCIDOL
     Indication: Lymphangioma
  8. MENATETRENONE [Concomitant]
     Active Substance: MENATETRENONE
     Indication: Bone lesion
     Dosage: UNK
     Route: 048
  9. MAGNESIUM OXIDE [Concomitant]
     Active Substance: MAGNESIUM OXIDE
     Indication: Constipation
     Dosage: UNK
     Route: 048
  10. MIDODRINE HYDROCHLORIDE [Concomitant]
     Active Substance: MIDODRINE HYDROCHLORIDE
     Indication: Lymphangioma
     Dosage: UNK
     Route: 048
     Dates: start: 20220915

REACTIONS (4)
  - Pleural effusion [Recovering/Resolving]
  - Infectious pleural effusion [Recovering/Resolving]
  - Ascites [Recovering/Resolving]
  - Pleural effusion [Recovering/Resolving]

NARRATIVE: CASE EVENT DATE: 20220308
